FAERS Safety Report 9100483 (Version 3)
Quarter: 2014Q1

REPORT INFORMATION
  Report Type: Report from Study
  Country: BD (occurrence: BD)
  Receive Date: 20130214
  Receipt Date: 20140225
  Transmission Date: 20141002
  Serious: Yes (Death, Hospitalization)
  Sender: FDA-Public Use
  Company Number: PHHY2013BD013401

PATIENT
  Age: 71 Year
  Sex: Male

DRUGS (1)
  1. EXELON PATCH [Suspect]
     Indication: DEMENTIA
     Dosage: 9.5 MG, UNK
     Route: 062
     Dates: start: 201201, end: 201202

REACTIONS (3)
  - Dementia [Fatal]
  - Myocardial infarction [Recovering/Resolving]
  - Dyspnoea [Unknown]
